FAERS Safety Report 15571332 (Version 2)
Quarter: 2018Q4

REPORT INFORMATION
  Report Type: Spontaneous
  Country: US (occurrence: US)
  Receive Date: 20181031
  Receipt Date: 20181116
  Transmission Date: 20190205
  Serious: Yes (Hospitalization, Other)
  Sender: FDA-Public Use
  Company Number: US-ACTELION-A-US2018-180808

PATIENT
  Age: 52 Year
  Sex: Female
  Weight: 101.9 kg

DRUGS (15)
  1. AMBRISENTAN [Suspect]
     Active Substance: AMBRISENTAN
     Indication: PULMONARY ARTERIAL HYPERTENSION
     Dosage: 10 MG,QD
     Route: 065
     Dates: start: 20180706
  2. AMBRISENTAN [Suspect]
     Active Substance: AMBRISENTAN
     Dosage: 5 MG, QD
     Route: 065
     Dates: start: 20180705
  3. UPTRAVI [Suspect]
     Active Substance: SELEXIPAG
     Indication: PULMONARY ARTERIAL HYPERTENSION
     Dosage: 200 MCG, BID
     Route: 048
  4. LASIX [Concomitant]
     Active Substance: FUROSEMIDE
  5. ARIPIPRAZOLE. [Concomitant]
     Active Substance: ARIPIPRAZOLE
  6. ATORVASTATIN CALCIUM. [Concomitant]
     Active Substance: ATORVASTATIN CALCIUM
  7. BENZTROPINE MESYLATE. [Concomitant]
     Active Substance: BENZTROPINE MESYLATE
  8. ELIQUIS [Concomitant]
     Active Substance: APIXABAN
  9. CALCITRIOL. [Concomitant]
     Active Substance: CALCITRIOL
  10. VITAMIN B12 [Concomitant]
     Active Substance: CYANOCOBALAMIN
  11. SILDENAFIL. [Suspect]
     Active Substance: SILDENAFIL
     Indication: PULMONARY ARTERIAL HYPERTENSION
     Dosage: 40 MG, TID
     Route: 065
     Dates: start: 20180627
  12. FERROUS SULFATE. [Concomitant]
     Active Substance: FERROUS SULFATE
  13. LITHIUM CARBONATE. [Concomitant]
     Active Substance: LITHIUM CARBONATE
  14. SPIRONOLACTONE. [Concomitant]
     Active Substance: SPIRONOLACTONE
  15. VENTOLIN HFA [Concomitant]
     Active Substance: ALBUTEROL SULFATE

REACTIONS (12)
  - Pulmonary hypertension [Unknown]
  - Headache [Unknown]
  - Motor dysfunction [Not Recovered/Not Resolved]
  - Syncope [Unknown]
  - Feeding tube user [Unknown]
  - Tremor [Not Recovered/Not Resolved]
  - Fluid retention [Unknown]
  - Condition aggravated [Unknown]
  - Weight decreased [Unknown]
  - Mechanical ventilation [Recovered/Resolved]
  - Pain in extremity [Unknown]
  - Dyspnoea [Unknown]
